FAERS Safety Report 13719775 (Version 1)
Quarter: 2017Q3

REPORT INFORMATION
  Report Type: Spontaneous
  Country: US (occurrence: US)
  Receive Date: 20170705
  Receipt Date: 20170705
  Transmission Date: 20171127
  Serious: Yes (Other)
  Sender: FDA-Public Use
  Company Number: PHHY2017US094271

PATIENT
  Sex: Male

DRUGS (2)
  1. CARBIDOPA/LEVODOPA [Suspect]
     Active Substance: CARBIDOPA\LEVODOPA
     Indication: TREMOR
     Route: 065
  2. ROPINIROLE. [Suspect]
     Active Substance: ROPINIROLE
     Indication: ON AND OFF PHENOMENON
     Route: 065

REACTIONS (3)
  - Alien limb syndrome [Recovered/Resolved]
  - Hallucination [Recovered/Resolved]
  - Confusional state [Unknown]
